FAERS Safety Report 4616238-4 (Version None)
Quarter: 2005Q1

REPORT INFORMATION
  Report Type: 
  Country: None (occurrence: None)
  Receive Date: 20050321
  Receipt Date: 20050304
  Transmission Date: 20050727
  Serious: Yes (Hospitalization, Other)
  Sender: FDA-Public Use
  Company Number: A-US2005-08914

PATIENT
  Age: 46 Year
  Sex: Male
  Weight: 86.4 kg

DRUGS (11)
  1. TRACLEER [Suspect]
     Indication: PULMONARY HYPERTENSION
     Dosage: SEE IMAGE
     Route: 048
     Dates: start: 20030901, end: 20031001
  2. TRACLEER [Suspect]
     Indication: PULMONARY HYPERTENSION
     Dosage: SEE IMAGE
     Route: 048
     Dates: start: 20031001, end: 20040901
  3. DAPSONE [Concomitant]
  4. ACYCLOVIR [Concomitant]
  5. KALETRA [Concomitant]
  6. VIREAD [Concomitant]
  7. EPIVIR [Concomitant]
  8. OXYCODONE (OXYCODONE) [Concomitant]
  9. OXYGEN (OXYGEN) [Concomitant]
  10. TYLENOL W/ CODEINE NO. 3 [Concomitant]
  11. COUMADIN [Concomitant]

REACTIONS (16)
  - BLOOD ALBUMIN DECREASED [None]
  - BRONCHITIS [None]
  - DRUG TOXICITY [None]
  - HEPATITIS A ANTIBODY POSITIVE [None]
  - HEPATITIS ACUTE [None]
  - HEPATITIS C RNA POSITIVE [None]
  - HEPATITIS VIRAL [None]
  - HEPATOSPLENOMEGALY [None]
  - HODGKIN'S DISEASE [None]
  - MITRAL VALVE INCOMPETENCE [None]
  - OBSTRUCTION [None]
  - PANCYTOPENIA [None]
  - PNEUMONIA [None]
  - SINUSITIS [None]
  - UPPER RESPIRATORY TRACT INFECTION [None]
  - VIRAL INFECTION [None]
